FAERS Safety Report 24362303 (Version 1)
Quarter: 2024Q3

REPORT INFORMATION
  Report Type: Spontaneous
  Country: CA (occurrence: CA)
  Receive Date: 20240925
  Receipt Date: 20240925
  Transmission Date: 20241017
  Serious: Yes (Other)
  Sender: PFIZER
  Company Number: CA-PFIZER INC-PV202400123766

PATIENT
  Sex: Female

DRUGS (1)
  1. DEPO-PROVERA [Suspect]
     Active Substance: MEDROXYPROGESTERONE ACETATE
     Dosage: UNK
     Dates: start: 2000, end: 2018

REACTIONS (11)
  - Meningioma [Unknown]
  - Facial paralysis [Unknown]
  - Discouragement [Unknown]
  - Mental disorder [Unknown]
  - Vision blurred [Unknown]
  - Muscular weakness [Unknown]
  - Memory impairment [Unknown]
  - Nausea [Unknown]
  - Emotional distress [Unknown]
  - Injury [Unknown]
  - Emotional disorder [Unknown]

NARRATIVE: CASE EVENT DATE: 20200101
